FAERS Safety Report 20431505 (Version 5)
Quarter: 2022Q1

REPORT INFORMATION
  Report Type: Spontaneous
  Country: TR (occurrence: TR)
  Receive Date: 20220204
  Receipt Date: 20220331
  Transmission Date: 20220423
  Serious: Yes (Death, Other)
  Sender: FDA-Public Use
  Company Number: TR-PFIZER INC-202200153996

PATIENT
  Age: 91 Year
  Sex: Male

DRUGS (3)
  1. MEROPENEM [Suspect]
     Active Substance: MEROPENEM
     Indication: Pneumonia aspiration
     Dosage: UNK
  2. MEROPENEM [Suspect]
     Active Substance: MEROPENEM
     Indication: Sepsis
  3. TEICOPLANIN [Suspect]
     Active Substance: TEICOPLANIN
     Dosage: UNK

REACTIONS (7)
  - Death [Fatal]
  - Acinetobacter infection [Unknown]
  - Muscle haemorrhage [Unknown]
  - Urinary tract candidiasis [Unknown]
  - Cellulite [Unknown]
  - Klebsiella infection [Unknown]
  - Drug ineffective [Unknown]

NARRATIVE: CASE EVENT DATE: 20210805
